FAERS Safety Report 19649275 (Version 2)
Quarter: 2021Q3

REPORT INFORMATION
  Report Type: Report from Study
  Country: US (occurrence: US)
  Receive Date: 20210802
  Receipt Date: 20210825
  Transmission Date: 20211014
  Serious: No
  Sender: FDA-Public Use
  Company Number: US-TAKEDA-2021TUS046174

PATIENT
  Sex: Male
  Weight: 84 kg

DRUGS (2)
  1. CARVEDILOL. [Concomitant]
     Active Substance: CARVEDILOL
     Indication: HYPERTENSION
     Dosage: UNK
     Route: 065
  2. BRIGATINIB [Suspect]
     Active Substance: BRIGATINIB
     Indication: LUNG NEOPLASM MALIGNANT
     Dosage: 180 MILLIGRAM, QD
     Route: 065

REACTIONS (3)
  - Acne [Not Recovered/Not Resolved]
  - Dermatitis allergic [Recovering/Resolving]
  - Headache [Not Recovered/Not Resolved]
